FAERS Safety Report 5788502-7 (Version None)
Quarter: 2008Q2

REPORT INFORMATION
  Report Type: 
  Country: None (occurrence: None)
  Receive Date: 20080625
  Receipt Date: 20080625
  Transmission Date: 20081010
  Serious: Yes (Hospitalization)
  Sender: FDA-Public Use
  Company Number: None

PATIENT
  Sex: Male
  Weight: 77.1115 kg

DRUGS (4)
  1. DIGITEK - 125 MCG [Suspect]
     Indication: CARDIAC FAILURE
     Dosage: 125 MCG  1 AT NIGHT
     Dates: start: 20060114, end: 20080501
  2. DIGITEK - 125 MCG [Suspect]
     Indication: CARDIAC FAILURE CONGESTIVE
     Dosage: 125 MCG  1 AT NIGHT
     Dates: start: 20060114, end: 20080501
  3. DIGITEK - 125 MCG [Suspect]
  4. DIGITEK - 125 MCG [Suspect]

REACTIONS (3)
  - INCORRECT DOSE ADMINISTERED [None]
  - LOSS OF CONSCIOUSNESS [None]
  - MYOCARDIAL INFARCTION [None]
